FAERS Safety Report 6498862-X (Version None)
Quarter: 2009Q4

REPORT INFORMATION
  Report Type: 
  Country: None (occurrence: None)
  Receive Date: 20091215
  Receipt Date: 20091109
  Transmission Date: 20100525
  Serious: No
  Sender: FDA-Public Use
  Company Number: FI-ROCHE-668122

PATIENT
  Sex: Female

DRUGS (3)
  1. TAMIFLU [Suspect]
     Dosage: FREQUENCY: 1X2
     Route: 048
     Dates: start: 20091027, end: 20091031
  2. PANADOL [Concomitant]
     Route: 048
     Dates: start: 20091027, end: 20091028
  3. SERETIDE DISKUS [Concomitant]
     Indication: ASTHMA
     Route: 055

REACTIONS (2)
  - NO ADVERSE EVENT [None]
  - PREGNANCY [None]
